FAERS Safety Report 10201678 (Version 2)
Quarter: 2014Q2

REPORT INFORMATION
  Report Type: Spontaneous
  Country: GB (occurrence: GB)
  Receive Date: 20140528
  Receipt Date: 20140616
  Transmission Date: 20141212
  Serious: Yes (Other)
  Sender: FDA-Public Use
  Company Number: GB-PFIZER INC-2014142865

PATIENT
  Sex: 0

DRUGS (1)
  1. INLYTA [Suspect]
     Dosage: UNK

REACTIONS (1)
  - Immune thrombocytopenic purpura [Unknown]
